FAERS Safety Report 5688154-0 (Version None)
Quarter: 2008Q1

REPORT INFORMATION
  Report Type: 
  Country: None (occurrence: None)
  Receive Date: 20080327
  Receipt Date: 20080317
  Transmission Date: 20080703
  Serious: Yes (Hospitalization)
  Sender: FDA-Public Use
  Company Number: DSU-2008-00402

PATIENT
  Sex: Female

DRUGS (1)
  1. OLMETEC HCT (HYDROCHLOROTHIAZIDE, OLMESARTAN MEDOXOMIL)(TABLET)(HYDROC [Suspect]
     Indication: ESSENTIAL HYPERTENSION
     Dosage: 20/12.5MG (QD), PER ORAL
     Route: 048
     Dates: start: 20071201, end: 20080301

REACTIONS (1)
  - HYPERTENSIVE CRISIS [None]
